FAERS Safety Report 12897874 (Version 1)
Quarter: 2016Q4

REPORT INFORMATION
  Report Type: Spontaneous
  Country: US (occurrence: US)
  Receive Date: 20161028
  Receipt Date: 20161028
  Transmission Date: 20170207
  Serious: No
  Sender: FDA-Public Use
  Company Number: None

PATIENT
  Age: 62 Year
  Sex: Male

DRUGS (1)
  1. HUMIRA [Suspect]
     Active Substance: ADALIMUMAB
     Indication: COLITIS
     Route: 058
     Dates: start: 20160126

REACTIONS (5)
  - Feeling cold [None]
  - Dizziness [None]
  - Tooth fracture [None]
  - Nausea [None]
  - Post procedural complication [None]

NARRATIVE: CASE EVENT DATE: 20160226
